FAERS Safety Report 16597518 (Version 1)
Quarter: 2019Q3

REPORT INFORMATION
  Report Type: Spontaneous
  Country: US (occurrence: US)
  Receive Date: 20190719
  Receipt Date: 20190719
  Transmission Date: 20191004
  Serious: No
  Sender: FDA-Public Use
  Company Number: US-SUNOVION-2019SUN002994

PATIENT
  Sex: Male

DRUGS (1)
  1. LATUDA [Suspect]
     Active Substance: LURASIDONE HYDROCHLORIDE
     Dosage: 10 MG, QD (HALF LATUDA 20 MG TABLET)
     Route: 048

REACTIONS (3)
  - Wrong technique in product usage process [Unknown]
  - Vision blurred [Unknown]
  - Insomnia [Unknown]
